FAERS Safety Report 12585816 (Version 3)
Quarter: 2016Q4

REPORT INFORMATION
  Report Type: Report from Study
  Country: JP (occurrence: JP)
  Receive Date: 20160725
  Receipt Date: 20161027
  Transmission Date: 20170207
  Serious: Yes (Hospitalization, Other)
  Sender: FDA-Public Use
  Company Number: JP-SHIRE-JP201604889AA

PATIENT
  Age: 79 Year
  Sex: Female

DRUGS (5)
  1. 422 (ANAGRELIDE) [Suspect]
     Active Substance: ANAGRELIDE
     Dosage: 1.0 MG/DAY
     Route: 048
     Dates: start: 20150908, end: 20150914
  2. BAYASPIRIN [Concomitant]
     Active Substance: ASPIRIN
     Indication: ESSENTIAL THROMBOCYTHAEMIA
     Dosage: 100 MG/DAY
     Route: 048
     Dates: start: 20150901, end: 20151013
  3. BAYASPIRIN [Concomitant]
     Active Substance: ASPIRIN
     Indication: PROPHYLAXIS
  4. 422 (ANAGRELIDE) [Suspect]
     Active Substance: ANAGRELIDE
     Indication: ESSENTIAL THROMBOCYTHAEMIA
     Dosage: 2.0 MG/DAY
     Route: 048
     Dates: start: 20150929
  5. 422 (ANAGRELIDE) [Suspect]
     Active Substance: ANAGRELIDE
     Dosage: 1.5 MG/DAY
     Route: 048
     Dates: start: 20150915, end: 20150928

REACTIONS (2)
  - Palpitations [Recovered/Resolved]
  - Bile duct obstruction [Recovered/Resolved]

NARRATIVE: CASE EVENT DATE: 20150915
